FAERS Safety Report 8560973-2 (Version None)
Quarter: 2012Q3

REPORT INFORMATION
  Report Type: 
  Country: None (occurrence: None)
  Receive Date: 20120727
  Receipt Date: 20120727
  Transmission Date: 20120928
  Serious: Yes (Hospitalization)
  Sender: FDA-Public Use
  Company Number: None

PATIENT
  Age: 41 Year
  Sex: Female
  Weight: 75.2 kg

DRUGS (17)
  1. MORPHINE [Suspect]
     Indication: BACK PAIN
     Dosage: CHRONIC
  2. DILAUDID [Suspect]
     Indication: BACK PAIN
     Dosage: CHRONIC
  3. KLONOPIN [Suspect]
     Indication: BACK PAIN
     Dosage: CHRONIC
  4. SYNTHROID [Concomitant]
  5. LOTEMAX [Concomitant]
  6. PREDNISONE TAB [Concomitant]
  7. REGLAN [Concomitant]
  8. DIAZEPAM [Suspect]
     Indication: BACK PAIN
     Dosage: CHRONIC
  9. DEPAKOTE [Concomitant]
  10. RESTASIS [Concomitant]
  11. FENTANYL [Suspect]
     Indication: BACK PAIN
     Dosage: CHRONIC
  12. TRAMADOL HCL [Suspect]
     Indication: BACK PAIN
     Dosage: CHRONIC
  13. LORAZEPAM [Suspect]
     Indication: BACK PAIN
     Dosage: CHRONIC
  14. SEASONALE [Concomitant]
  15. ZOFRAN [Concomitant]
  16. COLACE [Concomitant]
  17. TOFRANIL [Suspect]
     Indication: BACK PAIN
     Dosage: CHRONIC

REACTIONS (3)
  - SOMNOLENCE [None]
  - DYSARTHRIA [None]
  - ACCIDENTAL OVERDOSE [None]
